FAERS Safety Report 5545203-8 (Version None)
Quarter: 2007Q4

REPORT INFORMATION
  Report Type: 
  Country: None (occurrence: None)
  Receive Date: 20071123
  Receipt Date: 20070418
  Transmission Date: 20080405
  Serious: Yes (Other)
  Sender: FDA-Public Use
  Company Number: US-JNJFOC-20070300895

PATIENT
  Age: 35 Year
  Sex: Male
  Weight: 98.4306 kg

DRUGS (2)
  1. LEVAQUIN [Suspect]
     Indication: SINUSITIS
     Dosage: 500 MG, 1 IN 1 DAY, ORAL
     Route: 048
     Dates: start: 20070201, end: 20070201
  2. LOTREL (LOTREL) UNSPECIFIED [Concomitant]

REACTIONS (1)
  - NEUROPATHY PERIPHERAL [None]
